FAERS Safety Report 15270747 (Version 1)
Quarter: 2018Q3

REPORT INFORMATION
  Report Type: Spontaneous
  Country: AU (occurrence: AU)
  Receive Date: 20180813
  Receipt Date: 20180813
  Transmission Date: 20181010
  Serious: Yes (Other)
  Sender: FDA-Public Use
  Company Number: AU-PFIZER INC-2018315493

PATIENT
  Sex: Male

DRUGS (5)
  1. SUNITINIB MALATE. [Suspect]
     Active Substance: SUNITINIB MALATE
     Indication: RENAL CELL CARCINOMA
     Dosage: UNK, CYCLIC (4 CYCLES)
     Dates: start: 2015
  2. IPILIMUMAB [Suspect]
     Active Substance: IPILIMUMAB
     Indication: RENAL CELL CARCINOMA
     Dosage: UNK, CYCLIC (4 CYCLES)
     Dates: start: 2015
  3. NIVOLUMAB [Suspect]
     Active Substance: NIVOLUMAB
     Indication: RENAL CELL CARCINOMA
     Dosage: UNK, CYCLIC (4 CYCLES)
     Dates: start: 2015
  4. NIVOLUMAB [Suspect]
     Active Substance: NIVOLUMAB
     Indication: CLEAR CELL RENAL CELL CARCINOMA
     Dosage: UNK, 2X/WEEK
  5. IPILIMUMAB [Suspect]
     Active Substance: IPILIMUMAB
     Indication: CLEAR CELL RENAL CELL CARCINOMA

REACTIONS (2)
  - Hypothyroidism [Recovering/Resolving]
  - Autoimmune thyroiditis [Recovering/Resolving]
